FAERS Safety Report 6111522-X (Version None)
Quarter: 2009Q1

REPORT INFORMATION
  Report Type: 
  Country: None (occurrence: None)
  Receive Date: 20090309
  Receipt Date: 20090224
  Transmission Date: 20090719
  Serious: Yes (Other)
  Sender: FDA-Public Use
  Company Number: 2009AL001127

PATIENT
  Age: 67 Year
  Sex: Male

DRUGS (8)
  1. MIRTAZAPINE       (AMIDE) [Suspect]
     Indication: DEPRESSION
     Dosage: 45 MG;QD;PO
     Route: 048
     Dates: start: 20060101, end: 20080814
  2. ACETYLSALICYLIC ACID [Concomitant]
  3. ATENOLOL [Concomitant]
  4. ATORVASTATIN [Concomitant]
  5. TEMAZEPAM [Concomitant]
  6. VALPROIC ACID [Concomitant]
  7. FERROUS SULFATE TAB [Concomitant]
  8. ADCAL-D3 [Concomitant]

REACTIONS (1)
  - SEXUAL DYSFUNCTION [None]
